FAERS Safety Report 9970052 (Version 1)
Quarter: 2014Q1

REPORT INFORMATION
  Report Type: Report from Study
  Country: HU (occurrence: HU)
  Receive Date: 20140306
  Receipt Date: 20140306
  Transmission Date: 20141002
  Serious: Yes (Other)
  Sender: FDA-Public Use
  Company Number: HU-ASTRAZENECA-2014SE15115

PATIENT
  Age: 53 Year
  Sex: Female

DRUGS (2)
  1. SYMBICORT TURBUHALER [Suspect]
     Indication: ASTHMA
     Dosage: 2X2 INHALATIONS, TWO TIMES A DAY
     Route: 055
     Dates: start: 20140129, end: 20140221
  2. LETROX [Concomitant]
     Indication: GOITRE
     Route: 048

REACTIONS (7)
  - Chest pain [Not Recovered/Not Resolved]
  - Back pain [Unknown]
  - Hypertension [Unknown]
  - Visual impairment [Unknown]
  - Influenza like illness [Not Recovered/Not Resolved]
  - Cough [Unknown]
  - Blood glucose increased [Unknown]
